FAERS Safety Report 6626349-X (Version None)
Quarter: 2010Q1

REPORT INFORMATION
  Report Type: 
  Country: None (occurrence: None)
  Receive Date: 20100310
  Receipt Date: 20100302
  Transmission Date: 20100710
  Serious: Yes (Other)
  Sender: FDA-Public Use
  Company Number: GB-GILEAD-2010-0027387

PATIENT
  Sex: Male

DRUGS (6)
  1. TRUVADA [Suspect]
     Indication: HIV INFECTION
  2. CYCLOPHOSPHAMIDE [Concomitant]
     Indication: NEOPLASM
  3. DOXORUBICIN [Concomitant]
     Indication: NEOPLASM
  4. VINCRISTINE [Concomitant]
     Indication: NEOPLASM
  5. PREDNISOLONE [Concomitant]
     Indication: NEOPLASM
  6. KALETRA [Concomitant]

REACTIONS (1)
  - OCULAR VASCULITIS [None]
